FAERS Safety Report 6663211-0 (Version None)
Quarter: 2010Q1

REPORT INFORMATION
  Report Type: 
  Country: None (occurrence: None)
  Receive Date: 20100331
  Receipt Date: 20100331
  Transmission Date: 20100710
  Serious: Yes (Death)
  Sender: FDA-Public Use
  Company Number: None

PATIENT
  Age: 78 Year
  Sex: Female
  Weight: 63.5036 kg

DRUGS (2)
  1. AMIODARONE HCL [Suspect]
     Indication: ATRIAL FIBRILLATION
     Dates: start: 20081101, end: 20090622
  2. PROPOFOL [Suspect]
     Indication: ENDOTRACHEAL INTUBATION
     Dosage: IV CONTINUOUS IV IV DRIP
     Route: 041
     Dates: start: 20090705, end: 20090720

REACTIONS (15)
  - ATRIAL FIBRILLATION [None]
  - BRAIN INJURY [None]
  - CARDIAC ARREST [None]
  - CEREBROVASCULAR ACCIDENT [None]
  - CHEST DISCOMFORT [None]
  - COMA [None]
  - DRUG TOXICITY [None]
  - DYSPNOEA [None]
  - HAEMORRHAGE [None]
  - HALLUCINATION [None]
  - INTRACARDIAC THROMBUS [None]
  - MEDICATION ERROR [None]
  - PNEUMONIA [None]
  - PULSE ABSENT [None]
  - WRONG DRUG ADMINISTERED [None]
